FAERS Safety Report 6389352-3 (Version None)
Quarter: 2009Q4

REPORT INFORMATION
  Report Type: 
  Country: None (occurrence: None)
  Receive Date: 20091003
  Receipt Date: 20090924
  Transmission Date: 20100525
  Serious: Yes (Death)
  Sender: FDA-Public Use
  Company Number: DSA_34111_2009

PATIENT
  Age: 56 Year
  Sex: Female

DRUGS (2)
  1. XENAZINE [Suspect]
     Indication: TARDIVE DYSKINESIA
     Dosage: 12.5 MG, QD, IN THE EVENING
     Dates: start: 20090723, end: 20090725
  2. PRILOSEC [Concomitant]

REACTIONS (9)
  - AMNESIA [None]
  - DECREASED APPETITE [None]
  - INAPPROPRIATE SCHEDULE OF DRUG ADMINISTRATION [None]
  - INSOMNIA [None]
  - NAUSEA [None]
  - PNEUMONIA [None]
  - TREATMENT NONCOMPLIANCE [None]
  - TREMOR [None]
  - VOMITING [None]
